FAERS Safety Report 7028290-X (Version None)
Quarter: 2010Q4

REPORT INFORMATION
  Report Type: 
  Country: None (occurrence: None)
  Receive Date: 20101005
  Receipt Date: 20100923
  Transmission Date: 20110411
  Serious: Yes (Congenital Anomaly)
  Sender: FDA-Public Use
  Company Number: US-ROCHE-651750

PATIENT
  Sex: Male
  Weight: 7.4 kg

DRUGS (14)
  1. TRASTUZUMAB [Suspect]
     Indication: BREAST CANCER
     Route: 064
  2. NYSTATIN [Concomitant]
     Indication: RASH
     Dosage: UNK
     Dates: start: 20090626
  3. NYSTATIN [Concomitant]
     Dosage: UNK
     Dates: start: 20091109, end: 20091130
  4. BACTROBAN [Concomitant]
     Indication: RASH
     Dosage: UNK
     Dates: start: 20091109, end: 20091130
  5. ZITHROMAX [Concomitant]
     Indication: NASAL CONGESTION
     Dosage: UNK
     Dates: start: 20091204, end: 20091208
  6. ZITHROMAX [Concomitant]
  7. ALBUTEROL [Concomitant]
     Indication: RESPIRATORY SYNCYTIAL VIRUS INFECTION
     Dosage: UNK
     Dates: start: 20100105, end: 20100121
  8. ALBUTEROL [Concomitant]
     Dosage: UNK
     Dates: start: 20100121, end: 20100129
  9. ALBUTEROL [Concomitant]
     Dosage: UNK
  10. ROBITUSSIN COLD + COUGH [Concomitant]
     Indication: RESPIRATORY SYNCYTIAL VIRUS INFECTION
     Dosage: UNK
     Dates: start: 20100105, end: 20100129
  11. AUGMENTIN '125' [Concomitant]
     Indication: RESPIRATORY SYNCYTIAL VIRUS INFECTION
     Dosage: 200 MG, UNK
     Dates: start: 20100105, end: 20100101
  12. AUGMENTIN '125' [Concomitant]
     Dosage: UNK
     Dates: start: 20100220
  13. OMNICEF [Concomitant]
     Dosage: 1 TSP, QD
     Dates: start: 20100129, end: 20100201
  14. ATUSS DS [Concomitant]
     Dosage: 3 ML, Q12H
     Dates: start: 20100129

REACTIONS (7)
  - COW'S MILK INTOLERANCE [None]
  - MILIA [None]
  - NASAL CONGESTION [None]
  - RESPIRATORY SYNCYTIAL VIRUS INFECTION [None]
  - RESPIRATORY TRACT INFECTION [None]
  - RHINORRHOEA [None]
  - VENTRICULAR SEPTAL DEFECT [None]
